FAERS Safety Report 25913894 (Version 1)
Quarter: 2025Q4

REPORT INFORMATION
  Report Type: Report from Study
  Country: MX (occurrence: MX)
  Receive Date: 20251013
  Receipt Date: 20251013
  Transmission Date: 20260117
  Serious: Yes (Hospitalization, Other)
  Sender: ASTELLAS
  Company Number: MX-ASTELLAS-2025-AER-055474

PATIENT
  Age: 62 Year
  Sex: Male

DRUGS (1)
  1. ENZALUTAMIDE [Suspect]
     Active Substance: ENZALUTAMIDE
     Indication: Hormone-refractory prostate cancer
     Route: 048
     Dates: start: 20250729

REACTIONS (6)
  - Colon neoplasm [Recovered/Resolved]
  - Gastritis [Recovered/Resolved]
  - Bone neoplasm [Unknown]
  - Melaena [Recovered/Resolved]
  - Pain in extremity [Recovered/Resolved]
  - Vertigo [Recovered/Resolved]

NARRATIVE: CASE EVENT DATE: 20250901
